FAERS Safety Report 24996026 (Version 1)
Quarter: 2025Q1

REPORT INFORMATION
  Report Type: Spontaneous
  Country: US (occurrence: US)
  Receive Date: 20250221
  Receipt Date: 20250221
  Transmission Date: 20250409
  Serious: No
  Sender: CATALYST PHARMA
  Company Number: US-CATALYST PHARMACEUTICALS-US-CATA-24-01582

PATIENT
  Age: 10 Year
  Sex: Male
  Weight: 44.444 kg

DRUGS (8)
  1. AGAMREE [Suspect]
     Active Substance: VAMOROLONE
     Indication: Duchenne muscular dystrophy
     Dosage: 5.5 ML DAILY
     Route: 048
     Dates: start: 20240429, end: 20240725
  2. AGAMREE [Suspect]
     Active Substance: VAMOROLONE
     Dosage: 6.1 ML DAILY
     Route: 048
     Dates: start: 20240725, end: 202412
  3. AGAMREE [Suspect]
     Active Substance: VAMOROLONE
     Dosage: 6.6 ML DAILY
     Route: 048
     Dates: start: 202412
  4. FLINTSTONE^S MULTIVITAMIN [Concomitant]
     Indication: Product used for unknown indication
     Dosage: ONE TABLET DAILY
     Route: 065
  5. LISINOPRIL [Concomitant]
     Active Substance: LISINOPRIL
     Indication: Product used for unknown indication
     Dosage: 5 MG DAILY
     Route: 065
  6. METOPROLOL SUCCINATE [Concomitant]
     Active Substance: METOPROLOL SUCCINATE
     Indication: Product used for unknown indication
     Dosage: 25 MG DAILY
     Route: 065
  7. SPIRONOLACTONE [Concomitant]
     Active Substance: SPIRONOLACTONE
     Indication: Product used for unknown indication
     Dosage: 25 MG ONCE DAILY
     Route: 065
  8. VITAMIN D3 [Concomitant]
     Active Substance: CHOLECALCIFEROL
     Indication: Product used for unknown indication
     Dosage: 50 MCG ONCE DAILY
     Route: 065

REACTIONS (1)
  - Weight increased [Not Recovered/Not Resolved]

NARRATIVE: CASE EVENT DATE: 20241205
